FAERS Safety Report 21268267 (Version 1)
Quarter: 2022Q3

REPORT INFORMATION
  Report Type: Other
  Country: None (occurrence: US)
  Receive Date: 20220830
  Receipt Date: 20220830
  Transmission Date: 20221027
  Serious: Yes (Life-Threatening, Hospitalization)
  Sender: FDA-Public Use
  Company Number: US-Appco Pharma LLC-2132364

PATIENT
  Age: 31 Year
  Sex: Female

DRUGS (3)
  1. HYDROXYCHLOROQUINE SULFATE [Suspect]
     Active Substance: HYDROXYCHLOROQUINE SULFATE
     Indication: COVID-19
     Route: 065
  2. PERAMIVIR [Suspect]
     Active Substance: PERAMIVIR
     Route: 065
  3. DABIGATRAN [Concomitant]
     Active Substance: DABIGATRAN
     Route: 065

REACTIONS (2)
  - Therapeutic product ineffective for unapproved indication [Unknown]
  - Condition aggravated [Unknown]
